FAERS Safety Report 17362976 (Version 3)
Quarter: 2020Q2

REPORT INFORMATION
  Report Type: Spontaneous
  Country: US (occurrence: US)
  Receive Date: 20200203
  Receipt Date: 20200422
  Transmission Date: 20200713
  Serious: Yes (Other)
  Sender: FDA-Public Use
  Company Number: US-LEXICON PHARMACEUTICALS, INC-20-1606-00071

PATIENT
  Age: 70 Year
  Sex: Male

DRUGS (2)
  1. SANDOSTATIN [Concomitant]
     Active Substance: OCTREOTIDE ACETATE
  2. XERMELO [Suspect]
     Active Substance: TELOTRISTAT ETHYL
     Indication: CARCINOID SYNDROME
     Dates: start: 20191218

REACTIONS (4)
  - Flatulence [Not Recovered/Not Resolved]
  - Neoplasm progression [Not Recovered/Not Resolved]
  - Flushing [Not Recovered/Not Resolved]
  - Product dose omission [Unknown]
